FAERS Safety Report 19579202 (Version 1)
Quarter: 2021Q3

REPORT INFORMATION
  Report Type: Spontaneous
  Country: CA (occurrence: CA)
  Receive Date: 20210719
  Receipt Date: 20210719
  Transmission Date: 20211014
  Serious: Yes (Life-Threatening, Hospitalization, Other)
  Sender: FDA-Public Use
  Company Number: CA-OTSUKA-2021_024747

PATIENT
  Age: 60 Year
  Sex: Male

DRUGS (3)
  1. INQOVI [Suspect]
     Active Substance: CEDAZURIDINE\DECITABINE
     Indication: PRODUCT USED FOR UNKNOWN INDICATION
     Dosage: UNK
     Route: 048
  2. PRECEDEX [Suspect]
     Active Substance: DEXMEDETOMIDINE HYDROCHLORIDE
     Indication: AGITATION
  3. PRECEDEX [Suspect]
     Active Substance: DEXMEDETOMIDINE HYDROCHLORIDE
     Indication: DELIRIUM
     Dosage: 1 ?G/KG
     Route: 042

REACTIONS (2)
  - Cardiac arrest [Recovered/Resolved]
  - Bradycardia [Recovered/Resolved]
